FAERS Safety Report 7008088-9 (Version None)
Quarter: 2010Q3

REPORT INFORMATION
  Report Type: 
  Country: None (occurrence: None)
  Receive Date: 20100920
  Receipt Date: 20100910
  Transmission Date: 20110219
  Serious: Yes (Other)
  Sender: FDA-Public Use
  Company Number: 018606

PATIENT
  Age: 26 Year
  Sex: Female
  Weight: 50 kg

DRUGS (1)
  1. VIMPAT [Suspect]
     Indication: EPILEPSY
     Dosage: 100 MG BID ORAL
     Route: 048
     Dates: start: 20100301, end: 20100701

REACTIONS (2)
  - DIPLOPIA [None]
  - EXTRAOCULAR MUSCLE PARESIS [None]
